FAERS Safety Report 24124903 (Version 1)
Quarter: 2024Q3

REPORT INFORMATION
  Report Type: Report from Study
  Country: NO (occurrence: NO)
  Receive Date: 20240723
  Receipt Date: 20240723
  Transmission Date: 20241016
  Serious: Yes (Other)
  Sender: ROCHE
  Company Number: NO-ROCHE-10000024114

PATIENT

DRUGS (6)
  1. MYCOPHENOLATE MOFETIL [Suspect]
     Active Substance: MYCOPHENOLATE MOFETIL
     Indication: Prophylaxis against transplant rejection
     Route: 065
  2. CYCLOPHOSPHAMIDE [Suspect]
     Active Substance: CYCLOPHOSPHAMIDE
     Indication: Prophylaxis against transplant rejection
     Route: 065
  3. CYCLOSPORINE [Suspect]
     Active Substance: CYCLOSPORINE
     Indication: Prophylaxis against transplant rejection
     Route: 065
  4. FLUDARABINE [Concomitant]
     Active Substance: FLUDARABINE PHOSPHATE
  5. TREOSULFAN [Concomitant]
     Active Substance: TREOSULFAN
  6. THIOTEPA [Concomitant]
     Active Substance: THIOTEPA

REACTIONS (8)
  - Bacteraemia [Unknown]
  - Epstein-Barr virus infection reactivation [Unknown]
  - Cytomegalovirus infection reactivation [Unknown]
  - Stenotrophomonas infection [Unknown]
  - Staphylococcal infection [Unknown]
  - Fungal infection [Unknown]
  - Aspergillus infection [Unknown]
  - Septic shock [Unknown]
